FAERS Safety Report 23781327 (Version 4)
Quarter: 2025Q1

REPORT INFORMATION
  Report Type: Report from Study
  Country: JP (occurrence: JP)
  Receive Date: 20240425
  Receipt Date: 20250214
  Transmission Date: 20250408
  Serious: Yes (Life-Threatening, Hospitalization, Other)
  Sender: MERZ
  Company Number: JP-teijin-202401301_XEO_P_1

PATIENT

DRUGS (4)
  1. XEOMIN [Suspect]
     Active Substance: INCOBOTULINUMTOXINA
     Indication: Muscle spasticity
     Dosage: 100 INTERNATIONAL UNIT
     Route: 030
     Dates: start: 20230921, end: 20230921
  2. XEOMIN [Suspect]
     Active Substance: INCOBOTULINUMTOXINA
     Dosage: 200 INTERNATIONAL UNIT
     Route: 030
     Dates: start: 20231207, end: 20231207
  3. XEOMIN [Suspect]
     Active Substance: INCOBOTULINUMTOXINA
     Dosage: 300 INTERNATIONAL UNIT
     Route: 030
     Dates: start: 20240229, end: 20240229
  4. VESICARE [Concomitant]
     Active Substance: SOLIFENACIN SUCCINATE
     Indication: Hypertonic bladder
     Dosage: 2.5 MILLIGRAM
     Route: 048

REACTIONS (3)
  - Myocardial infarction [Unknown]
  - Dysaesthesia [Recovering/Resolving]
  - Off label use [Unknown]

NARRATIVE: CASE EVENT DATE: 20230921
